FAERS Safety Report 8837593 (Version 1)
Quarter: 2012Q4

REPORT INFORMATION
  Report Type: Report from Study
  Country: US (occurrence: US)
  Receive Date: 20121012
  Receipt Date: 20121012
  Transmission Date: 20130627
  Serious: Yes (Life-Threatening, Other)
  Sender: FDA-Public Use
  Company Number: US-JNJFOC-20121004839

PATIENT
  Age: 44 Year
  Sex: Female

DRUGS (2)
  1. NUCYNTA ER [Suspect]
     Indication: PRODUCT USED FOR UNKNOWN INDICATION
     Dosage: 3 large handfulls of tapentadol, estimated to be 90 tablets of 75 mg based on the pill count
     Route: 065
  2. ETHANOL [Suspect]
     Indication: PRODUCT USED FOR UNKNOWN INDICATION
     Route: 065

REACTIONS (9)
  - Intentional overdose [Recovering/Resolving]
  - Metabolic acidosis [Recovering/Resolving]
  - Depressed level of consciousness [Recovered/Resolved]
  - Respiratory depression [Recovered/Resolved]
  - Convulsion [Recovered/Resolved]
  - Tachycardia [Recovered/Resolved]
  - Hypoglycaemia [Recovered/Resolved]
  - Aspiration [Recovered/Resolved]
  - Nausea [Recovered/Resolved]
